FAERS Safety Report 5367273-2 (Version None)
Quarter: 2007Q2

REPORT INFORMATION
  Report Type: 
  Country: None (occurrence: None)
  Receive Date: 20070622
  Receipt Date: 20070612
  Transmission Date: 20071010
  Serious: Yes (Hospitalization)
  Sender: FDA-Public Use
  Company Number: FR-SOLVAY-00207032760

PATIENT
  Age: 85 Year
  Sex: Female

DRUGS (6)
  1. LASIX [Concomitant]
     Indication: ILL-DEFINED DISORDER
     Dosage: DAILY DOSE:  UNKNOWN
     Route: 048
  2. PERINDOPRIL ERBUMINE [Suspect]
     Indication: ILL-DEFINED DISORDER
     Dosage: DAILY DOSE: 2 MILLIGRAM(S)
     Route: 048
     Dates: start: 20070401, end: 20070101
  3. PERINDOPRIL ERBUMINE [Suspect]
     Dosage: DAILY DOSE: 4 MILLIGRAM(S)
     Route: 048
     Dates: start: 20070101, end: 20070101
  4. PERINDOPRIL ERBUMINE [Suspect]
     Dosage: DAILY DOSE: 6 MILLIGRAM(S)
     Route: 048
     Dates: start: 20070101, end: 20070601
  5. PERINDOPRIL ERBUMINE [Suspect]
     Dosage: DAILY DOSE: 8 MILLIGRAM(S)
     Route: 048
     Dates: start: 20070601, end: 20070601
  6. CARDENSIEL [Concomitant]
     Indication: ILL-DEFINED DISORDER
     Dosage: DAILY DOSE:  UNKNOWN
     Route: 065

REACTIONS (3)
  - ARRHYTHMIA [None]
  - HYPERKALAEMIA [None]
  - RENAL FAILURE ACUTE [None]
